FAERS Safety Report 5219687-9 (Version None)
Quarter: 2007Q1

REPORT INFORMATION
  Report Type: 
  Country: None (occurrence: None)
  Receive Date: 20070125
  Receipt Date: 20070112
  Transmission Date: 20070707
  Serious: Yes (Hospitalization)
  Sender: FDA-Public Use
  Company Number: FR-BAXTER-2006BH015312

PATIENT
  Age: 44 Year
  Sex: Male
  Weight: 90 kg

DRUGS (9)
  1. FEIBA VH IMMUNO [Suspect]
     Indication: JOINT SURGERY
     Route: 042
     Dates: start: 20061026, end: 20061026
  2. FEIBA VH IMMUNO [Suspect]
     Route: 042
     Dates: start: 20061026, end: 20061026
  3. FEIBA VH IMMUNO [Suspect]
     Route: 042
     Dates: start: 20061026, end: 20061026
  4. FEIBA VH IMMUNO [Suspect]
     Route: 042
     Dates: start: 20061026, end: 20061026
  5. FEIBA VH IMMUNO [Suspect]
     Route: 042
     Dates: start: 20061027, end: 20061029
  6. FEIBA VH IMMUNO [Suspect]
     Route: 042
     Dates: start: 20061030, end: 20061101
  7. FEIBA VH IMMUNO [Suspect]
     Route: 042
     Dates: start: 20061102, end: 20061202
  8. FEIBA VH IMMUNO [Suspect]
     Route: 042
     Dates: start: 20061203, end: 20061207
  9. FEIBA VH IMMUNO [Suspect]
     Route: 042
     Dates: start: 20061208, end: 20070105

REACTIONS (2)
  - CONDITION AGGRAVATED [None]
  - FACTOR VIII INHIBITION [None]
